FAERS Safety Report 25417788 (Version 1)
Quarter: 2025Q2

REPORT INFORMATION
  Report Type: Spontaneous
  Country: FR (occurrence: FR)
  Receive Date: 20250610
  Receipt Date: 20250610
  Transmission Date: 20250717
  Serious: Yes (Death)
  Sender: ELI LILLY AND COMPANY
  Company Number: None

PATIENT
  Age: 64 Year
  Sex: Male
  Weight: 74 kg

DRUGS (5)
  1. ERBITUX [Suspect]
     Active Substance: CETUXIMAB
     Indication: Laryngeal cancer
     Route: 042
     Dates: start: 20241121, end: 20241121
  2. CARBOPLATIN [Concomitant]
     Active Substance: CARBOPLATIN
     Indication: Laryngeal cancer
     Dates: start: 20241121
  3. TAXOTERE [Concomitant]
     Active Substance: DOCETAXEL
     Indication: Laryngeal cancer
     Dates: start: 20241121
  4. SOLU-MEDROL [Concomitant]
     Active Substance: METHYLPREDNISOLONE SODIUM SUCCINATE
     Indication: Premedication
  5. POLARAMINE [Concomitant]
     Active Substance: DEXCHLORPHENIRAMINE MALEATE
     Indication: Premedication

REACTIONS (3)
  - Anaphylactic shock [Fatal]
  - Incorrect drug administration rate [Fatal]
  - Off label use [Fatal]

NARRATIVE: CASE EVENT DATE: 20241121
